FAERS Safety Report 12880479 (Version 2)
Quarter: 2018Q4

REPORT INFORMATION
  Report Type: Spontaneous
  Country: US (occurrence: US)
  Receive Date: 20161025
  Receipt Date: 20181115
  Transmission Date: 20190204
  Serious: No
  Sender: FDA-Public Use
  Company Number: US-BAUSCH-BL-2016-001237

PATIENT
  Age: 58 Year
  Sex: Female

DRUGS (2)
  1. ATIVAN [Suspect]
     Active Substance: LORAZEPAM
     Indication: FIBROMYALGIA
  2. ATIVAN [Suspect]
     Active Substance: LORAZEPAM
     Indication: CHRONIC FATIGUE SYNDROME
     Dosage: AS NEEDED
     Route: 048
     Dates: start: 20160105

REACTIONS (4)
  - Abdominal discomfort [Not Recovered/Not Resolved]
  - Dysgeusia [Not Recovered/Not Resolved]
  - Off label use [Not Recovered/Not Resolved]
  - Nervousness [Not Recovered/Not Resolved]

NARRATIVE: CASE EVENT DATE: 20160105
